FAERS Safety Report 14637719 (Version 2)
Quarter: 2020Q1

REPORT INFORMATION
  Report Type: Spontaneous
  Country: DE (occurrence: DE)
  Receive Date: 20180314
  Receipt Date: 20200226
  Transmission Date: 20200409
  Serious: Yes (Life-Threatening, Hospitalization, Other)
  Sender: FDA-Public Use
  Company Number: PHHY2016DE111831

PATIENT
  Age: 89 Year
  Sex: Female

DRUGS (8)
  1. TORASEMIDE [Suspect]
     Active Substance: TORSEMIDE
     Indication: PRODUCT USED FOR UNKNOWN INDICATION
     Dosage: 10 MG, BID
     Route: 065
  2. CEFUROXIME. [Suspect]
     Active Substance: CEFUROXIME
     Indication: PRODUCT USED FOR UNKNOWN INDICATION
     Dosage: 1.5 G, TID
     Route: 065
  3. VERAPAMIL [Interacting]
     Active Substance: VERAPAMIL HYDROCHLORIDE
     Indication: ATRIAL FIBRILLATION
     Dosage: 80 MG, TID
     Route: 065
  4. SIMVASTATIN. [Suspect]
     Active Substance: SIMVASTATIN
     Indication: PRODUCT USED FOR UNKNOWN INDICATION
     Dosage: 40 MG, QD
     Route: 065
  5. DALTEPARIN [Suspect]
     Active Substance: DALTEPARIN
     Indication: PRODUCT USED FOR UNKNOWN INDICATION
     Dosage: 5000 IU, BID
     Route: 065
  6. CARVEDILOL. [Interacting]
     Active Substance: CARVEDILOL
     Indication: HYPERTENSION
     Dosage: 12.5 MG, BID
     Route: 065
  7. FERROUS GLYCINE SULFATE [Suspect]
     Active Substance: FERROUS GLYCINE SULFATE
     Indication: PRODUCT USED FOR UNKNOWN INDICATION
     Dosage: 60 MG, QD
     Route: 065
  8. HEPARIN [Concomitant]
     Active Substance: HEPARIN SODIUM
     Indication: PROPHYLAXIS
     Dosage: 60 IU/KG
     Route: 065

REACTIONS (12)
  - Cardiac failure acute [Recovered/Resolved]
  - Pallor [Recovered/Resolved]
  - Cardiogenic shock [Recovered/Resolved]
  - Erysipelas [Unknown]
  - Atrial fibrillation [Recovered/Resolved]
  - Coma scale abnormal [Recovered/Resolved]
  - Respiratory failure [Recovered/Resolved]
  - Peripheral coldness [Recovered/Resolved]
  - Ejection fraction decreased [Recovered/Resolved]
  - Atrial flutter [Recovered/Resolved]
  - Drug interaction [Recovered/Resolved]
  - Stasis dermatitis [Unknown]

NARRATIVE: CASE EVENT DATE: 2015
